FAERS Safety Report 20743205 (Version 1)
Quarter: 2022Q2

REPORT INFORMATION
  Report Type: Report from Study
  Country: US (occurrence: US)
  Receive Date: 20220425
  Receipt Date: 20220425
  Transmission Date: 20220721
  Serious: Yes (Hospitalization, Other)
  Sender: FDA-Public Use
  Company Number: US-BRISTOL-MYERS SQUIBB COMPANY-2022-021767

PATIENT
  Age: 68 Year
  Sex: Male
  Weight: 84.4 kg

DRUGS (2)
  1. NIVOLUMAB [Suspect]
     Active Substance: NIVOLUMAB
     Indication: Metastatic renal cell carcinoma
     Dosage: TOTAL DOSE: 256.5 MG
     Route: 065
     Dates: start: 20220125, end: 20220125
  2. IPILIMUMAB [Suspect]
     Active Substance: IPILIMUMAB
     Indication: Metastatic renal cell carcinoma
     Dosage: TOTAL DOSE: 85.5 MG
     Route: 065
     Dates: start: 20220125, end: 20220125

REACTIONS (3)
  - Atrial flutter [Recovered/Resolved]
  - Myocarditis [Recovered/Resolved]
  - Colitis [Recovered/Resolved]

NARRATIVE: CASE EVENT DATE: 20220222
